FAERS Safety Report 17883841 (Version 2)
Quarter: 2020Q3

REPORT INFORMATION
  Report Type: Other
  Country: US (occurrence: US)
  Receive Date: 20200611
  Receipt Date: 20200722
  Transmission Date: 20201103
  Serious: Yes (Death, Other)
  Sender: FDA-Public Use
  Company Number: US-ROCHE-2617171

PATIENT
  Age: 61 Year
  Sex: Female

DRUGS (4)
  1. OSELTAMIVIR [Suspect]
     Active Substance: OSELTAMIVIR
     Indication: H1N1 INFLUENZA
  2. BALOXAVIR MARBOXIL. [Suspect]
     Active Substance: BALOXAVIR MARBOXIL
     Indication: INFLUENZA
  3. OSELTAMIVIR [Suspect]
     Active Substance: OSELTAMIVIR
     Indication: INFLUENZA
     Route: 065
  4. BALOXAVIR MARBOXIL. [Suspect]
     Active Substance: BALOXAVIR MARBOXIL
     Indication: H1N1 INFLUENZA
     Route: 065

REACTIONS (3)
  - Product use issue [Unknown]
  - Off label use [Unknown]
  - Pathogen resistance [Recovering/Resolving]
